FAERS Safety Report 6205553-9 (Version None)
Quarter: 2009Q2

REPORT INFORMATION
  Report Type: 
  Country: None (occurrence: None)
  Receive Date: 20090527
  Receipt Date: 20090331
  Transmission Date: 20091009
  Serious: Yes (Other)
  Sender: FDA-Public Use
  Company Number: US-ABBOTT-09P-163-0565840-00

PATIENT
  Sex: Female
  Weight: 68.1 kg

DRUGS (4)
  1. SIMCOR [Suspect]
     Indication: BLOOD TRIGLYCERIDES INCREASED
     Dosage: 500/20MG QHS
     Route: 048
     Dates: start: 20080901
  2. AMOXICILLIN [Suspect]
     Indication: PROPHYLAXIS
     Dosage: TAKING 3 TIMES DAILY
     Route: 048
     Dates: start: 20090201, end: 20090201
  3. AMOXICILLIN [Suspect]
     Indication: POST PROCEDURAL INFECTION
  4. TYLENOL (CAPLET) [Suspect]
     Indication: SLEEP DISORDER
     Dosage: TOOK ONCE RECENTLY ON 30 MAR 2009

REACTIONS (5)
  - FEELING ABNORMAL [None]
  - FLUSHING [None]
  - NASAL SEPTUM DEVIATION [None]
  - RASH [None]
  - SINUS HEADACHE [None]
